FAERS Safety Report 11497148 (Version 2)
Quarter: 2015Q3

REPORT INFORMATION
  Report Type: Spontaneous
  Country: GB (occurrence: GB)
  Receive Date: 20150911
  Receipt Date: 20150928
  Transmission Date: 20151125
  Serious: Yes (Other)
  Sender: FDA-Public Use
  Company Number: GB-GALDERMA-GB15005933

PATIENT
  Sex: Female

DRUGS (1)
  1. PLIAGLIS [Suspect]
     Active Substance: LIDOCAINE\TETRACAINE
     Indication: ANAESTHESIA
     Dosage: 70MG/70MG
     Route: 061

REACTIONS (7)
  - Chemical burns of eye [Recovered/Resolved]
  - Eye swelling [Recovered/Resolved]
  - Pain [Recovered/Resolved]
  - Accidental exposure to product [Recovered/Resolved]
  - Language disorder [Recovered/Resolved]
  - Eye pain [Recovered/Resolved]
  - Vision blurred [Recovered/Resolved]

NARRATIVE: CASE EVENT DATE: 20150707
